FAERS Safety Report 7655381-2 (Version None)
Quarter: 2011Q3

REPORT INFORMATION
  Report Type: 
  Country: None (occurrence: None)
  Receive Date: 20110729
  Receipt Date: 20110716
  Transmission Date: 20111222
  Serious: Yes (Hospitalization)
  Sender: FDA-Public Use
  Company Number: 2011AP001515

PATIENT
  Age: 43 Year
  Sex: Female

DRUGS (9)
  1. ARIPIPRAZOLE [Concomitant]
  2. DULOXETIME HYDROCHLORIDE [Concomitant]
  3. CYANOCOBALAMIN [Concomitant]
  4. LEVOTHYROXINE SODIUM [Concomitant]
  5. BUPROPION HYDROCHLORIDE [Suspect]
     Indication: DEPRESSION
     Dosage: 100 MG;BID
  6. GLUCOSAMINE [Concomitant]
  7. FERROUS SULFATE TAB [Concomitant]
  8. CALCIUM ASCORBATE [Concomitant]
  9. ERGOCALCIFEROL [Concomitant]

REACTIONS (2)
  - BLOOD SODIUM DECREASED [None]
  - ACUTE GENERALISED EXANTHEMATOUS PUSTULOSIS [None]
